FAERS Safety Report 10476787 (Version 3)
Quarter: 2014Q4

REPORT INFORMATION
  Report Type: Report from Study
  Country: BR (occurrence: BR)
  Receive Date: 20140925
  Receipt Date: 20141028
  Transmission Date: 20150528
  Serious: Yes (Other)
  Sender: FDA-Public Use
  Company Number: PHHY2014BR123888

PATIENT
  Age: 60 Year
  Sex: Male
  Weight: 62 kg

DRUGS (6)
  1. GALVUS [Suspect]
     Active Substance: VILDAGLIPTIN
     Indication: DIABETES MELLITUS
     Dosage: 1 DF (50 MG), BID
     Route: 065
  2. METFORMIN [Suspect]
     Active Substance: METFORMIN HYDROCHLORIDE
     Indication: DIABETES MELLITUS
     Dosage: 0.5 DF (850 MG), BID
     Route: 065
     Dates: start: 2006
  3. MERITOR [Suspect]
     Active Substance: GLIMEPIRIDE\METFORMIN
     Indication: DIABETES MELLITUS
     Dosage: 0.5 DF (1000 MG), BID (IN THE MORNING AND AT NIGHT)
     Route: 065
  4. INSULIN NPH//INSULIN ISOPHANE BOVINE [Suspect]
     Active Substance: INSULIN BEEF
     Indication: DIABETES MELLITUS
     Dosage: 50 IU (30 IU IN THE MORNING AND 20 IU AFTER LUNCH), QD
     Dates: start: 200603
  5. GLIBENCLAMIDE [Suspect]
     Active Substance: GLYBURIDE
     Indication: DIABETES MELLITUS
     Dosage: 1 DF, QD (AT NIGHT)
     Route: 065
     Dates: start: 200603
  6. INSULIN [Suspect]
     Active Substance: INSULIN NOS
     Indication: DIABETES MELLITUS
     Dosage: 10 IU, QD
     Route: 065
     Dates: start: 20140918

REACTIONS (10)
  - Blood glucose increased [Unknown]
  - Mental impairment [Unknown]
  - Dry mouth [Unknown]
  - Hepatitis C [Unknown]
  - Diabetes mellitus inadequate control [Unknown]
  - Head discomfort [Unknown]
  - Renal impairment [Unknown]
  - Diabetes mellitus [Unknown]
  - Depressed mood [Unknown]
  - Fatigue [Unknown]

NARRATIVE: CASE EVENT DATE: 2007
